FAERS Safety Report 18676557 (Version 1)
Quarter: 2020Q4

REPORT INFORMATION
  Report Type: Spontaneous
  Country: NL (occurrence: IT)
  Receive Date: 20201229
  Receipt Date: 20201229
  Transmission Date: 20210114
  Serious: Yes (Hospitalization)
  Sender: FDA-Public Use
  Company Number: IT-FRESENIUS KABI-FK202013979

PATIENT
  Age: 85 Year
  Sex: Male

DRUGS (1)
  1. ZOLEDRONIC ACID (MANUFACTURER UNKNOWN) [Suspect]
     Active Substance: ZOLEDRONIC ACID
     Indication: PLASMA CELL MYELOMA
     Route: 030

REACTIONS (3)
  - Osteonecrosis of jaw [Recovering/Resolving]
  - Bone fistula [Recovering/Resolving]
  - Abscess [Recovering/Resolving]

NARRATIVE: CASE EVENT DATE: 20200926
